FAERS Safety Report 13261119 (Version 1)
Quarter: 2017Q1

REPORT INFORMATION
  Report Type: Spontaneous
  Country: US (occurrence: US)
  Receive Date: 20170222
  Receipt Date: 20170222
  Transmission Date: 20170428
  Serious: Yes (Other)
  Sender: FDA-Public Use
  Company Number: US-SHIRE-US201703006

PATIENT
  Sex: Male
  Weight: 81.63 kg

DRUGS (1)
  1. ADDERALL XR [Suspect]
     Active Substance: AMPHETAMINE ASPARTATE\AMPHETAMINE SULFATE\DEXTROAMPHETAMINE SACCHARATE\DEXTROAMPHETAMINE SULFATE
     Indication: ATTENTION DEFICIT/HYPERACTIVITY DISORDER
     Dosage: 30 MG, 2X/DAY:BID (SOMETIMES AT NIGHT)
     Route: 048
     Dates: start: 1999, end: 2016

REACTIONS (10)
  - Feeling abnormal [Unknown]
  - Spontaneous penile erection [Recovered/Resolved]
  - Compulsive sexual behaviour [Not Recovered/Not Resolved]
  - Ejaculation disorder [Not Recovered/Not Resolved]
  - Substance use [Not Recovered/Not Resolved]
  - Prescribed overdose [Recovered/Resolved]
  - Hypersexuality [Not Recovered/Not Resolved]
  - Inappropriate schedule of drug administration [Recovered/Resolved]
  - Drug dependence [Not Recovered/Not Resolved]
  - Excessive masturbation [Not Recovered/Not Resolved]

NARRATIVE: CASE EVENT DATE: 1999
